FAERS Safety Report 18350599 (Version 4)
Quarter: 2020Q4

REPORT INFORMATION
  Report Type: Spontaneous
  Country: FR (occurrence: FR)
  Receive Date: 20201006
  Receipt Date: 20201119
  Transmission Date: 20210114
  Serious: Yes (Other)
  Sender: FDA-Public Use
  Company Number: FR-009507513-2010FRA001066

PATIENT
  Age: 20 Year
  Sex: Female
  Weight: 50 kg

DRUGS (1)
  1. NEXPLANON [Suspect]
     Active Substance: ETONOGESTREL
     Dosage: 1 IMPLANT IN THE LEFT ARM
     Route: 058
     Dates: start: 20170308

REACTIONS (5)
  - Incorrect product administration duration [Unknown]
  - Pulmonary artery stenosis [Unknown]
  - Complication associated with device [Recovered/Resolved]
  - Implant site pain [Unknown]
  - Device embolisation [Not Recovered/Not Resolved]

NARRATIVE: CASE EVENT DATE: 20170308
